FAERS Safety Report 13577934 (Version 2)
Quarter: 2017Q3

REPORT INFORMATION
  Report Type: Spontaneous
  Country: GB (occurrence: GB)
  Receive Date: 20170524
  Receipt Date: 20170711
  Transmission Date: 20171127
  Serious: Yes (Death, Hospitalization, Other)
  Sender: FDA-Public Use
  Company Number: GB-MYLANLABS-2017M1030392

PATIENT

DRUGS (7)
  1. CELECOXIB. [Suspect]
     Active Substance: CELECOXIB
     Indication: PAIN
     Dosage: 200 MG, BID
     Route: 048
     Dates: start: 20170426, end: 20170507
  2. SERTRALINE [Concomitant]
     Active Substance: SERTRALINE HYDROCHLORIDE
     Dosage: INCREASED DOSE AFTER ADMISSION FOR SUICIDE ATTEMPT
  3. PARACETAMOL [Concomitant]
     Active Substance: ACETAMINOPHEN
     Dosage: NEWLY STARTED
     Dates: start: 20170426
  4. OXYCODONE [Concomitant]
     Active Substance: OXYCODONE
     Dosage: NEWLY STARTED
     Dates: start: 20170426
  5. OLANZAPINE. [Suspect]
     Active Substance: OLANZAPINE
     Indication: ACUTE STRESS DISORDER
     Dosage: 5 MG, BID
     Route: 048
     Dates: start: 20170426, end: 20170507
  6. OXYCODONE [Concomitant]
     Active Substance: OXYCODONE
     Dosage: 3 HOURLY. NEWLY STARTED.
     Dates: start: 20170426
  7. OMEPRAZOLE. [Concomitant]
     Active Substance: OMEPRAZOLE
     Dosage: 20 MG, QD

REACTIONS (4)
  - Respiratory failure [Fatal]
  - Chest pain [Unknown]
  - Pulmonary embolism [Fatal]
  - Syncope [Recovered/Resolved]

NARRATIVE: CASE EVENT DATE: 20170503
